FAERS Safety Report 25498032 (Version 1)
Quarter: 2025Q3

REPORT INFORMATION
  Report Type: Spontaneous
  Country: EU (occurrence: EU)
  Receive Date: 20250701
  Receipt Date: 20250701
  Transmission Date: 20251020
  Serious: Yes (Hospitalization)
  Sender: SANDOZ
  Company Number: EU-ADIENNEP-2019AD000276

PATIENT
  Age: 38 Year
  Sex: Male
  Weight: 65 kg

DRUGS (19)
  1. BUSULFAN [Suspect]
     Active Substance: BUSULFAN
     Indication: Allogenic stem cell transplantation
     Route: 042
     Dates: start: 20190102, end: 20190103
  2. CYCLOSPORINE [Suspect]
     Active Substance: CYCLOSPORINE
     Indication: Immunosuppressant drug therapy
     Dosage: 2 DOSAGES 50 MG DAILY
     Route: 048
     Dates: start: 20190112
  3. CYCLOPHOSPHAMIDE [Suspect]
     Active Substance: CYCLOPHOSPHAMIDE
     Indication: Prophylaxis
     Route: 042
     Dates: start: 20190110, end: 20190112
  4. CELLCEPT [Suspect]
     Active Substance: MYCOPHENOLATE MOFETIL
     Indication: Product used for unknown indication
     Route: 065
  5. FLUDARABINE [Suspect]
     Active Substance: FLUDARABINE PHOSPHATE
     Indication: Allogenic stem cell transplantation
     Route: 042
     Dates: start: 20190102, end: 20190105
  6. THIOTEPA [Suspect]
     Active Substance: THIOTEPA
     Indication: Allogenic stem cell transplantation
     Route: 042
     Dates: start: 20181231, end: 20190101
  7. BACTRIM [Concomitant]
     Active Substance: SULFAMETHOXAZOLE\TRIMETHOPRIM
     Indication: Infection prophylaxis
     Route: 048
     Dates: start: 20190128
  8. URSODIOL [Concomitant]
     Active Substance: URSODIOL
     Indication: Prophylaxis
     Route: 065
     Dates: start: 20181231
  9. CYCLOSPORINE [Concomitant]
     Active Substance: CYCLOSPORINE
     Indication: Immunosuppressant drug therapy
     Dosage: 2 DOSAGES 75 MG DAILY
     Route: 048
     Dates: start: 201905
  10. Clamoxyl [Concomitant]
     Indication: Infection prophylaxis
     Dosage: 1 G DAILY
     Route: 048
     Dates: start: 20190128
  11. NEURONTIN [Concomitant]
     Active Substance: GABAPENTIN
     Indication: Epilepsy
     Dosage: 600 MG DAILY
     Route: 048
     Dates: start: 20190206
  12. PONATINIB [Concomitant]
     Active Substance: PONATINIB
     Indication: Immunomodulatory therapy
     Dosage: 15 MG DAILY
     Route: 048
     Dates: start: 20190315, end: 20190501
  13. FOLIC ACID [Concomitant]
     Active Substance: FOLIC ACID
     Indication: Anaemia prophylaxis
     Dosage: 5 MG DAILY
     Route: 048
     Dates: start: 20190307
  14. PIPERACILLIN SODIUM\TAZOBACTAM SODIUM [Concomitant]
     Active Substance: PIPERACILLIN SODIUM\TAZOBACTAM SODIUM
     Indication: Infection
     Dosage: 16 G DAILY
     Route: 042
     Dates: start: 20190113, end: 20190127
  15. PIPERACILLIN SODIUM\TAZOBACTAM SODIUM [Concomitant]
     Active Substance: PIPERACILLIN SODIUM\TAZOBACTAM SODIUM
     Dosage: 16 G DAILY
     Route: 042
     Dates: start: 20190129, end: 20190206
  16. FLUCONAZOLE [Concomitant]
     Active Substance: FLUCONAZOLE
     Indication: Antifungal prophylaxis
     Dosage: 400 MG DAILY
     Route: 048
     Dates: start: 20190107, end: 20190315
  17. VALACYCLOVIR HYDROCHLORIDE [Concomitant]
     Active Substance: VALACYCLOVIR HYDROCHLORIDE
     Indication: Infection prophylaxis
     Dosage: 1 G DAILY
     Route: 048
     Dates: start: 20181231
  18. VANCOMYCIN [Concomitant]
     Active Substance: VANCOMYCIN
     Indication: Infection
     Dosage: 2 G DAILY
     Route: 042
     Dates: start: 20190114, end: 20190115
  19. VANCOMYCIN [Concomitant]
     Active Substance: VANCOMYCIN
     Dosage: 2.5 G DAILY
     Route: 042
     Dates: start: 20190116, end: 20190121

REACTIONS (1)
  - Chronic graft versus host disease [Recovered/Resolved]

NARRATIVE: CASE EVENT DATE: 20190512
